FAERS Safety Report 9851976 (Version 1)
Quarter: 2014Q1

REPORT INFORMATION
  Report Type: Spontaneous
  Country: US (occurrence: US)
  Receive Date: 20140129
  Receipt Date: 20140129
  Transmission Date: 20141002
  Serious: Yes (Other)
  Sender: FDA-Public Use
  Company Number: US-AMGEN-USASP2014005168

PATIENT
  Age: 63 Year
  Sex: Female

DRUGS (4)
  1. PROLIA [Suspect]
     Indication: OSTEOPOROSIS POSTMENOPAUSAL
     Route: 065
  2. VITAMIN D                          /00107901/ [Concomitant]
     Route: 065
  3. VITAMIN C                          /00008001/ [Concomitant]
     Route: 065
  4. OMEGA 3 COMPLEX [Concomitant]
     Route: 065

REACTIONS (17)
  - Vaginal haemorrhage [Unknown]
  - Cystitis interstitial [Recovered/Resolved]
  - Restless legs syndrome [Unknown]
  - Fibromyalgia [Unknown]
  - Neuropathy peripheral [Unknown]
  - Plantar fasciitis [Unknown]
  - Chills [Recovered/Resolved]
  - Chest pain [Unknown]
  - Panic attack [Unknown]
  - Vulvovaginal burning sensation [Unknown]
  - Blood urine present [Unknown]
  - Musculoskeletal discomfort [Unknown]
  - Bone density abnormal [Unknown]
  - Adverse drug reaction [Unknown]
  - Pain [Unknown]
  - Bone pain [Unknown]
  - Pain in extremity [Unknown]
